FAERS Safety Report 5107383-8 (Version None)
Quarter: 2006Q3

REPORT INFORMATION
  Report Type: 
  Country: None (occurrence: None)
  Receive Date: 20060914
  Receipt Date: 20060829
  Transmission Date: 20061208
  Serious: Yes (Other)
  Sender: FDA-Public Use
  Company Number: 2006BI012423

PATIENT
  Sex: Male

DRUGS (2)
  1. AVONEX [Suspect]
     Indication: MULTIPLE SCLEROSIS
     Dosage: 30 UG; QW; IM
     Route: 030
     Dates: start: 20010810, end: 20060808
  2. STEROIDS (NOS) [Concomitant]

REACTIONS (4)
  - BLOOD GLUCOSE INCREASED [None]
  - CHILLS [None]
  - INSOMNIA [None]
  - PYREXIA [None]
